FAERS Safety Report 8059617-8 (Version None)
Quarter: 2012Q1

REPORT INFORMATION
  Report Type: 
  Country: None (occurrence: None)
  Receive Date: 20120120
  Receipt Date: 20120113
  Transmission Date: 20120608
  Serious: Yes (Hospitalization)
  Sender: FDA-Public Use
  Company Number: CH-US-EMD SERONO, INC.-7106899

PATIENT
  Sex: Female
  Weight: 48 kg

DRUGS (3)
  1. REBIF [Suspect]
     Indication: MULTIPLE SCLEROSIS
     Route: 058
     Dates: start: 19970101, end: 20111201
  2. REBIF [Suspect]
     Route: 058
     Dates: start: 20120101
  3. HORMONE TABLETS (UNSPECIFIED) [Concomitant]
     Indication: PRODUCT USED FOR UNKNOWN INDICATION
     Route: 048
     Dates: end: 20110401

REACTIONS (2)
  - RETINAL DETACHMENT [None]
  - HERPES ZOSTER [None]
